FAERS Safety Report 8322847-1 (Version None)
Quarter: 2012Q2

REPORT INFORMATION
  Report Type: 
  Country: None (occurrence: None)
  Receive Date: 20120430
  Receipt Date: 20120424
  Transmission Date: 20120825
  Serious: Yes (Hospitalization, Other)
  Sender: FDA-Public Use
  Company Number: PHHY2012FR018428

PATIENT
  Sex: Male

DRUGS (9)
  1. FERROUS SULFATE TAB [Suspect]
  2. IMIPENEM AND CILASTATIN SODIUM [Suspect]
     Indication: INFECTION
     Dates: start: 20111208
  3. COLIMYCINE [Concomitant]
  4. FOSFOMYCIN [Concomitant]
     Dosage: 4 G, QID
     Dates: start: 20120101
  5. VITAMIN D [Suspect]
  6. AMIKACIN [Suspect]
     Indication: INFECTION
     Dates: start: 20111216, end: 20111228
  7. RIFAMPICIN [Concomitant]
     Dates: end: 20120101
  8. VANCOMYCIN HCL [Suspect]
     Indication: INFECTION
     Dates: start: 20111208
  9. IMOVANE [Suspect]

REACTIONS (19)
  - PRURITUS [None]
  - FACE OEDEMA [None]
  - SPLENOMEGALY [None]
  - ABDOMINAL PAIN [None]
  - VOMITING [None]
  - EYELID OEDEMA [None]
  - CYTOLYTIC HEPATITIS [None]
  - HYPERHIDROSIS [None]
  - EOSINOPHILIA [None]
  - DIARRHOEA [None]
  - DRUG RASH WITH EOSINOPHILIA AND SYSTEMIC SYMPTOMS [None]
  - RASH MORBILLIFORM [None]
  - LYMPHADENOPATHY [None]
  - DECREASED APPETITE [None]
  - POLYP COLORECTAL [None]
  - DYSPHAGIA [None]
  - DERMATITIS EXFOLIATIVE [None]
  - COLON ADENOMA [None]
  - PYREXIA [None]
